FAERS Safety Report 11167166 (Version 1)
Quarter: 2015Q2

REPORT INFORMATION
  Report Type: Spontaneous
  Country: CA (occurrence: CA)
  Receive Date: 20150605
  Receipt Date: 20150605
  Transmission Date: 20150821
  Serious: Yes (Hospitalization, Other)
  Sender: FDA-Public Use
  Company Number: CA-ROCHE-1498122

PATIENT
  Age: 46 Year
  Sex: Female

DRUGS (4)
  1. XOLAIR [Suspect]
     Active Substance: OMALIZUMAB
     Route: 058
     Dates: start: 20140326
  2. XOLAIR [Suspect]
     Active Substance: OMALIZUMAB
     Route: 058
     Dates: start: 20050819
  3. XOLAIR [Suspect]
     Active Substance: OMALIZUMAB
     Indication: ASTHMA
     Route: 058
     Dates: start: 20050109
  4. XOLAIR [Suspect]
     Active Substance: OMALIZUMAB
     Route: 058
     Dates: start: 200911, end: 200911

REACTIONS (14)
  - Oropharyngeal pain [Unknown]
  - Bronchitis [Unknown]
  - Asthma [Unknown]
  - Blood potassium decreased [Unknown]
  - Wrist fracture [Unknown]
  - Epistaxis [Unknown]
  - Nasopharyngitis [Unknown]
  - Back pain [Unknown]
  - Injection site pain [Unknown]
  - Ear infection [Not Recovered/Not Resolved]
  - Vomiting [Unknown]
  - Chest pain [Unknown]
  - Retching [Unknown]
  - Sinusitis [Unknown]

NARRATIVE: CASE EVENT DATE: 201407
